FAERS Safety Report 24358917 (Version 6)
Quarter: 2025Q2

REPORT INFORMATION
  Report Type: Report from Study
  Country: US (occurrence: US)
  Receive Date: 20240924
  Receipt Date: 20250620
  Transmission Date: 20250717
  Serious: No
  Sender: SUNOVION
  Company Number: US-SUMITOMO PHARMA SWITZERLAND GMBH-2024SPA002316

PATIENT

DRUGS (4)
  1. ORGOVYX [Suspect]
     Active Substance: RELUGOLIX
     Indication: Prostate cancer
     Dosage: 360 MG, SINGLE
     Route: 048
     Dates: start: 20240816, end: 20240816
  2. ORGOVYX [Suspect]
     Active Substance: RELUGOLIX
     Dosage: 120 MG, QD
     Route: 048
     Dates: start: 20240817
  3. COREG [Concomitant]
     Active Substance: CARVEDILOL
     Route: 065
  4. XTANDI [Concomitant]
     Active Substance: ENZALUTAMIDE
     Indication: Product used for unknown indication
     Route: 065

REACTIONS (16)
  - Skin discolouration [Unknown]
  - Paranoia [Unknown]
  - Euphoric mood [Unknown]
  - Decreased appetite [Unknown]
  - Arthropod bite [Unknown]
  - Exposure to extreme temperature [Unknown]
  - Blood testosterone abnormal [Unknown]
  - Positive airway pressure therapy [Unknown]
  - Anxiety [Unknown]
  - Rash [Unknown]
  - Dizziness [Recovering/Resolving]
  - Insomnia [Unknown]
  - Constipation [Unknown]
  - Inappropriate schedule of product administration [Unknown]
  - Product closure issue [Unknown]
  - Therapy interrupted [Unknown]

NARRATIVE: CASE EVENT DATE: 20250526
